FAERS Safety Report 10239545 (Version 1)
Quarter: 2014Q2

REPORT INFORMATION
  Report Type: Spontaneous
  Country: US (occurrence: US)
  Receive Date: 20140616
  Receipt Date: 20140616
  Transmission Date: 20141212
  Serious: Yes (Other)
  Sender: FDA-Public Use
  Company Number: US-BAYER-2014-086138

PATIENT
  Age: 50 Year
  Sex: Male

DRUGS (1)
  1. GADAVIST [Suspect]
     Dosage: UNK UNK, ONCE
     Dates: start: 201405, end: 201405

REACTIONS (4)
  - Oxygen saturation decreased [Recovering/Resolving]
  - Dyspnoea [None]
  - Hypotension [None]
  - Vomiting [None]
